FAERS Safety Report 4505840-6 (Version None)
Quarter: 2004Q4

REPORT INFORMATION
  Report Type: 
  Country: None (occurrence: None)
  Receive Date: 20041025
  Receipt Date: 20040319
  Transmission Date: 20050328
  Serious: Yes (Hospitalization)
  Sender: FDA-Public Use
  Company Number: US-JNJFOC-20040304947

PATIENT
  Age: 43 Year
  Sex: Female
  Weight: 70 kg

DRUGS (3)
  1. REMICADE [Suspect]
     Indication: CROHN'S DISEASE
     Dosage: 10 MG/KG, INTRAVENOUS
     Route: 042
     Dates: start: 20040220
  2. FLAGYL [Concomitant]
  3. CIPRO [Concomitant]

REACTIONS (1)
  - CONDITION AGGRAVATED [None]
